FAERS Safety Report 6371477-X (Version None)
Quarter: 2009Q3

REPORT INFORMATION
  Report Type: 
  Country: None (occurrence: None)
  Receive Date: 20090923
  Receipt Date: 20070706
  Transmission Date: 20100115
  Serious: No
  Sender: FDA-Public Use
  Company Number: US-ASTRAZENECA-2007UW11139

PATIENT
  Age: 61 Year
  Sex: Female
  Weight: 83 kg

DRUGS (21)
  1. SEROQUEL [Suspect]
     Indication: SLEEP DISORDER
     Route: 048
     Dates: start: 20040213
  2. ASPIRIN [Concomitant]
     Dates: start: 20040204
  3. GLUCOTROL XL [Concomitant]
     Dates: start: 20040204
  4. LIPITOR [Concomitant]
     Dosage: 10 MG - 40 MG
     Dates: start: 20020927
  5. TOPROL-XL [Concomitant]
     Dates: start: 20040213
  6. PRINIVIL [Concomitant]
     Dates: start: 20020204
  7. NEXIUM [Concomitant]
     Dates: start: 20060213, end: 20061007
  8. CELEBREX [Concomitant]
     Dates: start: 20021118
  9. ZOLOFT [Concomitant]
     Dates: start: 20040213
  10. PERCOCET [Concomitant]
     Indication: PAIN
     Dosage: 5 MG - 325 MG
     Route: 048
     Dates: start: 20040204
  11. ULTRACET [Concomitant]
     Dosage: 37.5 MG - 325 MG
     Dates: start: 20040216
  12. VICODIN [Concomitant]
     Dosage: 5 MG - 500 MG
     Dates: start: 20040213
  13. ULTRAM [Concomitant]
     Dates: start: 20040220
  14. HYDROCHLOROTHIAZIDE [Concomitant]
     Dates: start: 20041004
  15. PRILOSEC [Concomitant]
     Dates: start: 20040825
  16. XANAX [Concomitant]
     Dates: start: 20050218
  17. ZOCOR [Concomitant]
     Dates: start: 20050706, end: 20050922
  18. NIACIN [Concomitant]
     Dates: start: 20050922
  19. NAPROSYN [Concomitant]
     Route: 048
     Dates: start: 20051018
  20. AMARYL [Concomitant]
     Route: 048
     Dates: start: 20050706
  21. LEXAPRO [Concomitant]
     Dates: start: 20050218

REACTIONS (4)
  - BLOOD CHOLESTEROL INCREASED [None]
  - BLOOD TRIGLYCERIDES INCREASED [None]
  - DIABETES MELLITUS [None]
  - OBESITY [None]
